FAERS Safety Report 12531103 (Version 1)
Quarter: 2016Q2

REPORT INFORMATION
  Report Type: Spontaneous
  Country: US (occurrence: None)
  Receive Date: 20160630
  Receipt Date: 20160630
  Transmission Date: 20160815
  Serious: Yes (Other)
  Sender: FDA-Public Use
  Company Number: 3004421212-T2015-140

PATIENT
  Age: 32 Year
  Sex: Female
  Weight: 84.82 kg

DRUGS (1)
  1. TRAMADOL HYDROCHLORIDE EXTENDED RELEASE CAPSULES [Suspect]
     Active Substance: TRAMADOL HYDROCHLORIDE

REACTIONS (1)
  - Seizure [None]
